FAERS Safety Report 4342811-7 (Version None)
Quarter: 2004Q2

REPORT INFORMATION
  Report Type: 
  Country: None (occurrence: None)
  Receive Date: 20040419
  Receipt Date: 20040419
  Transmission Date: 20050107
  Serious: No
  Sender: FDA-Public Use
  Company Number: None

PATIENT
  Age: 44 Year
  Sex: Male
  Weight: 56 kg

DRUGS (9)
  1. PAROXETINE HCL [Suspect]
     Indication: ANXIETY
     Dosage: BID PO
     Route: 048
     Dates: start: 20031003, end: 20031016
  2. PAROXETINE HCL [Suspect]
     Indication: DEPRESSION
     Dosage: BID PO
     Route: 048
     Dates: start: 20031003, end: 20031016
  3. EPIVIR [Concomitant]
  4. ZERIT [Concomitant]
  5. SUSTIVA [Concomitant]
  6. MARINOL [Concomitant]
  7. AMITRIPTYLINE HCL [Concomitant]
  8. FAMOTIDINE [Concomitant]
  9. COMBIVENT [Concomitant]

REACTIONS (5)
  - ANXIETY [None]
  - CONFUSIONAL STATE [None]
  - LETHARGY [None]
  - PARANOIA [None]
  - PHARMACEUTICAL PRODUCT COMPLAINT [None]
